FAERS Safety Report 4707964-7 (Version None)
Quarter: 2005Q3

REPORT INFORMATION
  Report Type: 
  Country: None (occurrence: None)
  Receive Date: 20050707
  Receipt Date: 20050624
  Transmission Date: 20060218
  Serious: Yes (Death, Life-Threatening, Other)
  Sender: FDA-Public Use
  Company Number: GB-JNJFOC-20050606537

PATIENT
  Sex: Male
  Weight: 97 kg

DRUGS (9)
  1. REMICADE [Suspect]
     Indication: RHEUMATOID ARTHRITIS
     Route: 042
  2. METHOTREXATE [Concomitant]
     Route: 065
  3. FOLIC ACID [Concomitant]
     Route: 065
  4. ALENDRONATE [Concomitant]
     Route: 065
  5. PREDNISOLONE [Concomitant]
     Route: 065
  6. ATENOLOL [Concomitant]
     Route: 065
  7. RAMIPRIL [Concomitant]
     Route: 065
  8. ASPRIN [Concomitant]
     Route: 065
  9. SULFASALAZINE [Concomitant]
     Route: 065

REACTIONS (2)
  - HYPERTROPHIC OBSTRUCTIVE CARDIOMYOPATHY [None]
  - PULMONARY FIBROSIS [None]
